FAERS Safety Report 9217825 (Version 1)
Quarter: 2013Q2

REPORT INFORMATION
  Report Type: Report from Study
  Country: TW (occurrence: TW)
  Receive Date: 20130408
  Receipt Date: 20130408
  Transmission Date: 20140414
  Serious: Yes (Hospitalization)
  Sender: FDA-Public Use
  Company Number: TW-009507513-2012SP009832

PATIENT
  Age: 50 Year
  Sex: Male
  Weight: 80.7 kg

DRUGS (8)
  1. ASENAPINE MALEATE-SCHIZOPHRENIA [Suspect]
     Indication: SCHIZOPHRENIA
     Dosage: 10 MG, BID
     Route: 048
     Dates: start: 20111116
  2. PROPRANOLOL HYDROCHLORIDE [Concomitant]
     Indication: EXTRAPYRAMIDAL DISORDER
     Dosage: UPDATE (03APR2012) DOSE
     Route: 048
     Dates: start: 20110828
  3. LORAZEPAM [Concomitant]
     Indication: INSOMNIA
     Dosage: UPDATE (03APR2012): DOSE: 1-2.5 MG
     Route: 048
     Dates: start: 20111005
  4. ZOPICLONE [Concomitant]
     Indication: INSOMNIA
     Dosage: 7.5 MG, HS
     Route: 048
     Dates: start: 20111116
  5. BIPERIDEN HYDROCHLORIDE [Concomitant]
     Indication: EXTRAPYRAMIDAL DISORDER
     Dosage: UPDATE (03APR2012) DOSE
     Route: 048
     Dates: start: 20110828
  6. BROTIZOLAM [Concomitant]
     Indication: INSOMNIA
     Dosage: UPDATE (03APR2012)
     Route: 048
     Dates: start: 20120321
  7. GLYBURIDE [Concomitant]
     Indication: DIABETES MELLITUS
     Dosage: UPDATE (03APR2012)
     Route: 048
     Dates: start: 20120323
  8. METFORMIN HYDROCHLORIDE [Concomitant]
     Indication: DIABETES MELLITUS
     Dosage: UPDATE (03APR2012)
     Route: 048
     Dates: start: 20120323

REACTIONS (1)
  - Schizophrenia [Recovering/Resolving]
